FAERS Safety Report 12290752 (Version 2)
Quarter: 2016Q2

REPORT INFORMATION
  Report Type: Spontaneous
  Country: US (occurrence: US)
  Receive Date: 20160421
  Receipt Date: 20160509
  Transmission Date: 20160815
  Serious: No
  Sender: FDA-Public Use
  Company Number: US-PFIZER INC-2016223830

PATIENT
  Age: 66 Year
  Sex: Male
  Weight: 60 kg

DRUGS (3)
  1. VIAGRA [Suspect]
     Active Substance: SILDENAFIL CITRATE
     Dosage: HE WAS CURRENTLY ON 50 MG
  2. ZOFRAN [Concomitant]
     Active Substance: ONDANSETRON HYDROCHLORIDE
     Dosage: UNK
  3. VIAGRA [Suspect]
     Active Substance: SILDENAFIL CITRATE
     Dosage: USED TO TAKE VIAGRA 100 MG AND WAS CUTTING THEM IN HALF

REACTIONS (4)
  - Headache [Recovered/Resolved]
  - Somnolence [Unknown]
  - Visual impairment [Unknown]
  - Drug effect increased [Unknown]
